FAERS Safety Report 8270759-4 (Version None)
Quarter: 2012Q2

REPORT INFORMATION
  Report Type: 
  Country: None (occurrence: None)
  Receive Date: 20120410
  Receipt Date: 20120401
  Transmission Date: 20120825
  Serious: No
  Sender: FDA-Public Use
  Company Number: US-BAYER-2012-031839

PATIENT

DRUGS (2)
  1. ACETAMINOPHEN [Suspect]
     Dosage: UNK
  2. ALEVE (CAPLET) [Suspect]
     Dosage: UNK
     Route: 048

REACTIONS (2)
  - FEELING ABNORMAL [None]
  - VERTIGO [None]
